FAERS Safety Report 9681115 (Version 1)
Quarter: 2013Q4

REPORT INFORMATION
  Report Type: Spontaneous
  Country: US (occurrence: US)
  Receive Date: 20131111
  Receipt Date: 20131111
  Transmission Date: 20140711
  Serious: Yes (Other)
  Sender: FDA-Public Use
  Company Number: US-SA-2013SA114990

PATIENT
  Sex: 0

DRUGS (2)
  1. LANTUS [Suspect]
     Route: 065
  2. VICTOZA [Suspect]
     Route: 065

REACTIONS (10)
  - Psoriasis [Unknown]
  - Panic attack [Unknown]
  - Anxiety [Unknown]
  - Weight increased [Recovered/Resolved]
  - Depression [Recovered/Resolved]
  - Feeling abnormal [Recovered/Resolved]
  - Malaise [Recovered/Resolved]
  - Sleep disorder [Recovered/Resolved]
  - Asthenia [Recovered/Resolved]
  - Blood glucose increased [Unknown]
